FAERS Safety Report 12093310 (Version 1)
Quarter: 2016Q1

REPORT INFORMATION
  Report Type: Spontaneous
  Country: US (occurrence: US)
  Receive Date: 20160219
  Receipt Date: 20160219
  Transmission Date: 20160526
  Serious: No
  Sender: FDA-Public Use
  Company Number: US-CANGENE-145687

PATIENT
  Sex: Male
  Weight: 59.7 kg

DRUGS (5)
  1. ZOSYN [Concomitant]
     Active Substance: PIPERACILLIN SODIUM\TAZOBACTAM SODIUM
     Indication: INFECTION
     Route: 042
     Dates: start: 20160120, end: 20160127
  2. BAT [Suspect]
     Active Substance: EQUINE BOTULINUM NEUROTOXIN A/B/C/D/E/F/G IMMUNE FAB2
     Indication: BOTULISM
     Dates: start: 20160127, end: 20160127
  3. FENTANYL DRIP [Concomitant]
     Indication: SEDATION
     Route: 042
     Dates: start: 20160125, end: 20160130
  4. FENTANYL DRIP [Concomitant]
     Indication: PAIN
     Route: 042
     Dates: start: 20160125, end: 20160130
  5. LABETALOL [Concomitant]
     Active Substance: LABETALOL\LABETALOL HYDROCHLORIDE
     Indication: BLOOD PRESSURE SYSTOLIC INCREASED
     Route: 042
     Dates: start: 20160127, end: 20160127

REACTIONS (1)
  - Pyrexia [Unknown]
